FAERS Safety Report 14952044 (Version 1)
Quarter: 2018Q2

REPORT INFORMATION
  Report Type: Spontaneous
  Country: US (occurrence: US)
  Receive Date: 20180509
  Receipt Date: 20180509
  Transmission Date: 20180711
  Serious: Yes (Other)
  Sender: FDA-Public Use
  Company Number: None

PATIENT
  Age: 60 Year
  Sex: Female

DRUGS (1)
  1. OTEZLA [Suspect]
     Active Substance: APREMILAST
     Indication: PSORIASIS
     Dosage: 1 AN - A NECESSARY TWICE A DAY ORAL
     Route: 048
     Dates: start: 20180412, end: 20180430

REACTIONS (3)
  - Disease recurrence [None]
  - Palpitations [None]
  - Intentional product use issue [None]

NARRATIVE: CASE EVENT DATE: 20180430
